FAERS Safety Report 16231220 (Version 1)
Quarter: 2019Q2

REPORT INFORMATION
  Report Type: Spontaneous
  Country: DE (occurrence: DE)
  Receive Date: 20190424
  Receipt Date: 20190424
  Transmission Date: 20190711
  Serious: Yes (Other)
  Sender: FDA-Public Use
  Company Number: DE-PROVELL PHARMACEUTICALS-2066151

PATIENT
  Age: 58 Year
  Sex: Female

DRUGS (11)
  1. CYMBALTA [Concomitant]
     Active Substance: DULOXETINE HYDROCHLORIDE
  2. EUTHYROX [Suspect]
     Active Substance: LEVOTHYROXINE SODIUM
     Indication: PRODUCT USED FOR UNKNOWN INDICATION
  3. VALSACOR COMP(CO-DIOVAN) [Concomitant]
  4. TORASEMID AL [Concomitant]
     Active Substance: TORSEMIDE
  5. PANTOPRAZOL HEXAL [Concomitant]
     Active Substance: PANTOPRAZOLE
  6. RIOPAN [Concomitant]
  7. VALSACOR [Concomitant]
     Active Substance: VALSARTAN
  8. NITRANGIN [Concomitant]
  9. NOVAMINSULFON [Concomitant]
     Active Substance: METAMIZOLE
  10. DEKRISTOL [Concomitant]
     Active Substance: CHOLECALCIFEROL
  11. MCP [Concomitant]
     Active Substance: METOCLOPRAMIDE HYDROCHLORIDE

REACTIONS (23)
  - Tremor [Unknown]
  - Formication [Unknown]
  - Chills [Unknown]
  - Eye pain [Unknown]
  - Muscular weakness [Unknown]
  - Headache [Unknown]
  - Dizziness [Unknown]
  - Palpitations [Unknown]
  - Osteoporosis [Unknown]
  - Productive cough [Unknown]
  - Nervousness [Unknown]
  - Muscle spasms [Unknown]
  - CSF pressure increased [Unknown]
  - Arrhythmia [Unknown]
  - Sleep disorder [Unknown]
  - Condition aggravated [Unknown]
  - Laboratory test abnormal [Unknown]
  - Hypoaesthesia [Unknown]
  - Peripheral coldness [Unknown]
  - Drug hypersensitivity [Unknown]
  - Restlessness [Unknown]
  - Weight increased [Unknown]
  - Pain in extremity [Unknown]
